FAERS Safety Report 6392423-9 (Version None)
Quarter: 2009Q4

REPORT INFORMATION
  Report Type: 
  Country: None (occurrence: None)
  Receive Date: 20091007
  Receipt Date: 20090930
  Transmission Date: 20100525
  Serious: Yes (Hospitalization, Other)
  Sender: FDA-Public Use
  Company Number: US-WYE-H09714009

PATIENT
  Age: 27 Year
  Sex: Male

DRUGS (2)
  1. TEMSIROLIMUS [Suspect]
     Indication: OESOPHAGEAL ADENOCARCINOMA
     Dosage: 10MG OR 15MG (MISSED 3 DOSES 2/5;3/17 AND 5/12/09
     Route: 042
     Dates: start: 20090122, end: 20090602
  2. DOCETAXEL [Suspect]
     Indication: OESOPHAGEAL ADENOCARCINOMA
     Dosage: 40 OR 50MG/M^2 EVERY 3 WEEKS
     Route: 042
     Dates: start: 20090122, end: 20090526

REACTIONS (15)
  - ABDOMINAL PAIN [None]
  - ATRIAL FLUTTER [None]
  - DECREASED APPETITE [None]
  - DIZZINESS [None]
  - DYSPNOEA [None]
  - FATIGUE [None]
  - GASTRIC ULCER HAEMORRHAGE [None]
  - HAEMOGLOBIN DECREASED [None]
  - HYPERHIDROSIS [None]
  - HYPOALBUMINAEMIA [None]
  - HYPOTENSION [None]
  - MUSCULAR WEAKNESS [None]
  - NAUSEA [None]
  - VOMITING [None]
  - WEIGHT DECREASED [None]
